FAERS Safety Report 7201841-8 (Version None)
Quarter: 2010Q4

REPORT INFORMATION
  Report Type: 
  Country: None (occurrence: None)
  Receive Date: 20101216
  Receipt Date: 20101116
  Transmission Date: 20110411
  Serious: Yes (Death, Hospitalization)
  Sender: FDA-Public Use
  Company Number: WSDF_00708

PATIENT
  Sex: Male
  Weight: 99.3377 kg

DRUGS (1)
  1. WINRHO [Suspect]
     Indication: THROMBOCYTOPENIA
     Dosage: 75 UG/KG TOTAL INTRAVENOUS
     Route: 042
     Dates: start: 20071231, end: 20071231

REACTIONS (5)
  - ACUTE HEPATIC FAILURE [None]
  - HAEMOLYSIS [None]
  - HEPATIC FAILURE [None]
  - OVERDOSE [None]
  - THROMBOCYTOPENIA [None]
